FAERS Safety Report 25243579 (Version 1)
Quarter: 2025Q2

REPORT INFORMATION
  Report Type: Other
  Country: PT (occurrence: PT)
  Receive Date: 20250428
  Receipt Date: 20250428
  Transmission Date: 20250717
  Serious: Yes (Hospitalization, Other)
  Sender: SPECTRA MEDICAL DEVICES, LLC
  Company Number: PT-Spectra Medical Devices, LLC-2175709

PATIENT
  Age: 28 Year
  Sex: Male
  Weight: 65 kg

DRUGS (2)
  1. LIDOCAINE HYDROCHLORIDE [Suspect]
     Active Substance: LIDOCAINE HYDROCHLORIDE
     Indication: Local anaesthesia
  2. ROPIVACAINE [Suspect]
     Active Substance: ROPIVACAINE

REACTIONS (5)
  - Local anaesthetic systemic toxicity [Recovered/Resolved]
  - Mean arterial pressure increased [Recovered/Resolved]
  - Paraesthesia oral [Recovered/Resolved]
  - Speech disorder [Recovered/Resolved]
  - Psychomotor hyperactivity [Recovered/Resolved]
